FAERS Safety Report 20845045 (Version 1)
Quarter: 2022Q2

REPORT INFORMATION
  Report Type: Spontaneous
  Country: IN (occurrence: IN)
  Receive Date: 20220518
  Receipt Date: 20220518
  Transmission Date: 20220721
  Serious: Yes (Hospitalization)
  Sender: FDA-Public Use
  Company Number: IN-LUPIN PHARMACEUTICALS INC.-2022-07065

PATIENT
  Age: 43 Year
  Sex: Female

DRUGS (4)
  1. POTASSIUM [Suspect]
     Active Substance: POTASSIUM
     Indication: Hypokalaemia
     Dosage: 240 MILLIEQUIVALENT, QD
     Route: 065
  2. MEROPENEM [Concomitant]
     Active Substance: MEROPENEM
     Indication: Pseudomonas infection
     Dosage: UNK
     Route: 065
  3. TARGOCID [Concomitant]
     Active Substance: TEICOPLANIN
     Indication: Pseudomonas infection
     Dosage: UNK
     Route: 065
  4. COLISTIN [Concomitant]
     Active Substance: COLISTIN
     Indication: Pseudomonas infection
     Dosage: UNK, 3 MILLION UNITS THREE TIMES A DAY
     Route: 065

REACTIONS (1)
  - Drug ineffective [Unknown]
